FAERS Safety Report 13742945 (Version 1)
Quarter: 2017Q3

REPORT INFORMATION
  Report Type: Spontaneous
  Country: FR (occurrence: FR)
  Receive Date: 20170711
  Receipt Date: 20170711
  Transmission Date: 20171127
  Serious: Yes (Hospitalization)
  Sender: FDA-Public Use
  Company Number: FR-SA-2017SA121985

PATIENT
  Age: 46 Year
  Sex: Male

DRUGS (20)
  1. EMEND [Suspect]
     Active Substance: APREPITANT
     Indication: VOMITING
     Route: 048
     Dates: start: 20170609, end: 20170609
  2. CACIT [Suspect]
     Active Substance: CALCIUM\VITAMIN D
     Indication: CALCIUM DEFICIENCY
     Route: 048
  3. CREON [Suspect]
     Active Substance: PANCRELIPASE AMYLASE\PANCRELIPASE LIPASE\PANCRELIPASE PROTEASE
     Indication: PANCREATIC FAILURE
     Dosage: FORM-GASTRO-RESISTANT GRANULES IN CAPSULE
     Route: 048
  4. REPAGLINIDE. [Suspect]
     Active Substance: REPAGLINIDE
     Indication: DIABETES MELLITUS
     Route: 048
  5. CORTANCYL [Suspect]
     Active Substance: PREDNISONE
     Indication: PROPHYLAXIS AGAINST TRANSPLANT REJECTION
     Route: 048
  6. TACROLIMUS HYDRATE [Suspect]
     Active Substance: TACROLIMUS
     Indication: PROPHYLAXIS AGAINST TRANSPLANT REJECTION
     Dosage: 2 MG IN THE MORNING AND 2.5 MG IN THE EVENING (4.5 MG
     Route: 048
  7. ARANESP [Suspect]
     Active Substance: DARBEPOETIN ALFA
     Indication: ANAEMIA
     Route: 058
  8. IXPRIM [Suspect]
     Active Substance: ACETAMINOPHEN\TRAMADOL HYDROCHLORIDE
     Indication: PAIN
     Route: 048
     Dates: start: 2017
  9. SOLU-MEDROL [Suspect]
     Active Substance: METHYLPREDNISOLONE SODIUM SUCCINATE
     Indication: PREMEDICATION
     Route: 042
     Dates: start: 20170609, end: 20170609
  10. BACTRIM [Suspect]
     Active Substance: SULFAMETHOXAZOLE\TRIMETHOPRIM
     Route: 048
     Dates: start: 20170612, end: 20170612
  11. LYRICA [Suspect]
     Active Substance: PREGABALIN
     Route: 048
     Dates: start: 2017
  12. LEVOTHYROX [Suspect]
     Active Substance: LEVOTHYROXINE
     Dosage: DIVISIBLE TABLET
     Route: 048
  13. IMUREL [Suspect]
     Active Substance: AZATHIOPRINE SODIUM
     Indication: PROPHYLAXIS AGAINST TRANSPLANT REJECTION
     Route: 048
     Dates: start: 20170609
  14. TOCOPHEROL [Suspect]
     Active Substance: TOCOPHEROL
     Indication: VITAMIN E DEFICIENCY
     Route: 048
  15. GEMCITABINE HYDROCHLORIDE. [Suspect]
     Active Substance: GEMCITABINE HYDROCHLORIDE
     Indication: ADENOCARCINOMA PANCREAS
     Route: 042
     Dates: start: 20170609, end: 20170609
  16. OXALIPLATIN. [Suspect]
     Active Substance: OXALIPLATIN
     Indication: NEOPLASM MALIGNANT
     Route: 042
     Dates: start: 20170609, end: 20170609
  17. RAMIPRIL. [Suspect]
     Active Substance: RAMIPRIL
     Indication: NEPHROPATHY
     Route: 048
  18. PARACETAMOL [Suspect]
     Active Substance: ACETAMINOPHEN
     Indication: PAIN
     Route: 048
  19. ZOPHREN [Suspect]
     Active Substance: ONDANSETRON
     Indication: PROPHYLAXIS OF NAUSEA AND VOMITING
     Route: 042
     Dates: start: 20170609, end: 20170609
  20. INEXIUM [Suspect]
     Active Substance: ESOMEPRAZOLE
     Route: 048

REACTIONS (7)
  - Gamma-glutamyltransferase increased [Not Recovered/Not Resolved]
  - Blood alkaline phosphatase increased [Not Recovered/Not Resolved]
  - Hepatocellular injury [Not Recovered/Not Resolved]
  - Jaundice [Not Recovered/Not Resolved]
  - Cholestasis [Not Recovered/Not Resolved]
  - Acute kidney injury [Recovering/Resolving]
  - Transaminases increased [Not Recovered/Not Resolved]

NARRATIVE: CASE EVENT DATE: 20170614
